FAERS Safety Report 8430679-9 (Version None)
Quarter: 2012Q2

REPORT INFORMATION
  Report Type: 
  Country: None (occurrence: None)
  Receive Date: 20120323
  Receipt Date: 20110510
  Transmission Date: 20120825
  Serious: Yes (Other)
  Sender: FDA-Public Use
  Company Number: 163-21880-11042893

PATIENT
  Age: 66 Year
  Sex: Male
  Weight: 90.7194 kg

DRUGS (8)
  1. ZOMETA [Concomitant]
  2. SULFADIAZINE [Concomitant]
  3. METOPROLOL TARTRATE [Concomitant]
  4. REVLIMID [Suspect]
     Indication: MULTIPLE MYELOMA
     Dosage: 25 MG, DAILY X 28 DAYS W/7 DAYS OFF, PO
     Route: 048
     Dates: start: 20110330
  5. REVLIMID [Suspect]
     Indication: MULTIPLE MYELOMA
     Dosage: 25 MG, DAILY X 28 DAYS W/7 DAYS OFF, PO
     Route: 048
     Dates: start: 20090616, end: 20100401
  6. HYDROCODONE BITARTRATE [Concomitant]
  7. ASPIRIN [Concomitant]
  8. AMBIEN [Concomitant]

REACTIONS (1)
  - BLOOD PRESSURE DECREASED [None]
